FAERS Safety Report 20448298 (Version 3)
Quarter: 2022Q4

REPORT INFORMATION
  Report Type: Spontaneous
  Country: CA (occurrence: CA)
  Receive Date: 20220209
  Receipt Date: 20221005
  Transmission Date: 20230113
  Serious: Yes (Other)
  Sender: FDA-Public Use
  Company Number: CA-PFIZER INC-202200175441

PATIENT
  Age: 36 Year
  Sex: Male
  Weight: 86 kg

DRUGS (1)
  1. SOMAVERT [Suspect]
     Active Substance: PEGVISOMANT
     Indication: Acromegaly
     Dosage: 20 MG, 1X/DAY
     Route: 058
     Dates: start: 20200803

REACTIONS (8)
  - Transsphenoidal surgery [Unknown]
  - Hypothalamo-pituitary disorder [Unknown]
  - Palpitations [Recovering/Resolving]
  - Chest discomfort [Unknown]
  - Blood cholesterol increased [Not Recovered/Not Resolved]
  - Low density lipoprotein decreased [Not Recovered/Not Resolved]
  - Non-high-density lipoprotein cholesterol increased [Not Recovered/Not Resolved]
  - Blood growth hormone increased [Not Recovered/Not Resolved]

NARRATIVE: CASE EVENT DATE: 20210609
